FAERS Safety Report 21112557 (Version 1)
Quarter: 2022Q3

REPORT INFORMATION
  Report Type: Spontaneous
  Country: US (occurrence: US)
  Receive Date: 20220721
  Receipt Date: 20220721
  Transmission Date: 20221027
  Serious: No
  Sender: FDA-Public Use
  Company Number: US-PFIZER INC-202200991166

PATIENT
  Age: 56 Year
  Sex: Male
  Weight: 74.84 kg

DRUGS (10)
  1. PAXLOVID [Suspect]
     Active Substance: NIRMATRELVIR\RITONAVIR
     Indication: COVID-19 treatment
     Dosage: UNK
     Dates: start: 20220708
  2. PREDNISONE [Concomitant]
     Active Substance: PREDNISONE
     Indication: Colitis ulcerative
     Dosage: 5 MG
  3. ZEPOSIA [Concomitant]
     Active Substance: OZANIMOD HYDROCHLORIDE
     Dosage: 0.92 MG
  4. TOPRAL [SULTOPRIDE] [Concomitant]
     Dosage: 50 MG
  5. CRESTOR [Concomitant]
     Active Substance: ROSUVASTATIN CALCIUM
     Dosage: 10 MG
  6. OMEPRAZOLE [Concomitant]
     Active Substance: OMEPRAZOLE
     Dosage: 40 MG
  7. MESALAMINE [Concomitant]
     Active Substance: MESALAMINE
     Dosage: 800 MG
  8. NORCO [Concomitant]
     Active Substance: ACETAMINOPHEN\HYDROCODONE BITARTRATE
     Dosage: 10/325 MG
  9. PLAVIX [Concomitant]
     Active Substance: CLOPIDOGREL BISULFATE
     Dosage: 75 MG
  10. IMURAN [Concomitant]
     Active Substance: AZATHIOPRINE
     Dosage: 50 MG

REACTIONS (2)
  - COVID-19 [Not Recovered/Not Resolved]
  - Disease recurrence [Not Recovered/Not Resolved]

NARRATIVE: CASE EVENT DATE: 20220717
